FAERS Safety Report 14910557 (Version 1)
Quarter: 2018Q2

REPORT INFORMATION
  Report Type: Spontaneous
  Country: ES (occurrence: ES)
  Receive Date: 20180517
  Receipt Date: 20180517
  Transmission Date: 20180711
  Serious: Yes (Hospitalization)
  Sender: FDA-Public Use
  Company Number: ES-MYLANLABS-2018M1032253

PATIENT
  Age: 4 Year
  Sex: Male
  Weight: 14 kg

DRUGS (2)
  1. DALSY 20 MG/ML SUSPENSI?N ORAL [Suspect]
     Active Substance: IBUPROFEN
     Indication: PRODUCT USED FOR UNKNOWN INDICATION
     Dosage: 7MG/KG DOSIS UNICA
     Route: 048
     Dates: start: 20170602, end: 20170602
  2. APIRETAL [Suspect]
     Active Substance: ACETAMINOPHEN
     Indication: PRODUCT USED FOR UNKNOWN INDICATION
     Dosage: 16 MG/KG/8H
     Route: 048
     Dates: start: 20170602, end: 20170604

REACTIONS (1)
  - Hepatitis [Recovered/Resolved]

NARRATIVE: CASE EVENT DATE: 20170604
